FAERS Safety Report 10083590 (Version 1)
Quarter: 2014Q2

REPORT INFORMATION
  Report Type: Spontaneous
  Country: RS (occurrence: RS)
  Receive Date: 20140417
  Receipt Date: 20140417
  Transmission Date: 20141212
  Serious: Yes (Hospitalization, Other)
  Sender: FDA-Public Use
  Company Number: RS-TEVA-473668ISR

PATIENT
  Age: 52 Year
  Sex: Male

DRUGS (5)
  1. METHOTREXATE [Suspect]
  2. METHOTREXATE [Suspect]
     Dates: start: 201311
  3. NSAIDS [Concomitant]
  4. CORTICOSTEROIDS [Concomitant]
  5. GASTRIC THERAPY [Concomitant]

REACTIONS (7)
  - Asthenia [Unknown]
  - Fatigue [Unknown]
  - Fatigue [Unknown]
  - Dizziness [Unknown]
  - Pallor [Unknown]
  - Mucosal discolouration [Unknown]
  - Anaemia [Unknown]
